FAERS Safety Report 7617737-3 (Version None)
Quarter: 2011Q3

REPORT INFORMATION
  Report Type: 
  Country: None (occurrence: None)
  Receive Date: 20110718
  Receipt Date: 20110712
  Transmission Date: 20111222
  Serious: Yes (Death)
  Sender: FDA-Public Use
  Company Number: PHHY2011AU62237

PATIENT
  Age: 28 Year
  Sex: Male

DRUGS (5)
  1. METHAMPHETAMINE HYDROCHLORIDE [Interacting]
     Dosage: UNK
  2. ETHANOL [Interacting]
     Dosage: UNK
  3. METHYLENEDIOXYMETHAMPHETAMINE [Interacting]
     Dosage: UNK
  4. SERTRALINE HYDROCHLORIDE [Suspect]
     Dosage: UNK
  5. TETRAHYDROCANNABINOL [Interacting]
     Dosage: UNK

REACTIONS (5)
  - ROAD TRAFFIC ACCIDENT [None]
  - HEAD INJURY [None]
  - SPINAL CORD INJURY [None]
  - TOXICITY TO VARIOUS AGENTS [None]
  - DRUG INTERACTION [None]
